FAERS Safety Report 7762345-7 (Version None)
Quarter: 2011Q3

REPORT INFORMATION
  Report Type: 
  Country: None (occurrence: None)
  Receive Date: 20110919
  Receipt Date: 20110919
  Transmission Date: 20111222
  Serious: Yes (Other)
  Sender: FDA-Public Use
  Company Number: None

PATIENT
  Sex: Male
  Weight: 119.7496 kg

DRUGS (3)
  1. FEXOFENADINE [Suspect]
     Indication: RHINITIS ALLERGIC
     Dosage: 180MG 1 ONLY PO
     Route: 048
  2. ZYRTEC [Suspect]
     Indication: RHINITIS ALLERGIC
     Dosage: 10MG 1 DAILY PO
     Route: 048
     Dates: start: 20090101
  3. CLARINEX [Suspect]
     Indication: RHINITIS ALLERGIC
     Dosage: 10 MG 1 DAILY PO
     Route: 048
     Dates: start: 20090101

REACTIONS (4)
  - HYPERSENSITIVITY [None]
  - SINUSITIS [None]
  - NAUSEA [None]
  - DIZZINESS [None]
